FAERS Safety Report 6527330-1 (Version None)
Quarter: 2009Q4

REPORT INFORMATION
  Report Type: 
  Country: None (occurrence: None)
  Receive Date: 20091222
  Receipt Date: 20091006
  Transmission Date: 20100525
  Serious: No
  Sender: FDA-Public Use
  Company Number: ALL1-2009-03082

PATIENT
  Age: 15 Year
  Sex: Female
  Weight: 49.9 kg

DRUGS (2)
  1. VYVANSE [Suspect]
     Indication: ATTENTION DEFICIT/HYPERACTIVITY DISORDER
     Dosage: 20 MG, 1X/DAY:QD, ORAL; 40 MG, (TWO 20 MG CAPSULES) 1X/DAY:QD, ORAL
     Route: 048
     Dates: start: 20090926, end: 20091002
  2. VYVANSE [Suspect]
     Indication: ATTENTION DEFICIT/HYPERACTIVITY DISORDER
     Dosage: 20 MG, 1X/DAY:QD, ORAL; 40 MG, (TWO 20 MG CAPSULES) 1X/DAY:QD, ORAL
     Route: 048
     Dates: start: 20091003

REACTIONS (3)
  - DRY MOUTH [None]
  - DYSPHAGIA [None]
  - OFF LABEL USE [None]
